FAERS Safety Report 9011191 (Version 1)
Quarter: 2013Q1

REPORT INFORMATION
  Report Type: Spontaneous
  Country: US (occurrence: US)
  Receive Date: 20130109
  Receipt Date: 20130109
  Transmission Date: 20140127
  Serious: Yes (Other)
  Sender: FDA-Public Use
  Company Number: US-009507513-1004USA01554

PATIENT
  Age: 7 Year
  Sex: Female
  Weight: 49.9 kg

DRUGS (2)
  1. SINGULAIR [Suspect]
     Indication: ASTHMA
     Dosage: 5 MG, QD
     Route: 048
  2. ASMANEX [Suspect]
     Indication: ASTHMA
     Dosage: 1 DF, QD
     Route: 055
     Dates: start: 20090602, end: 20090702

REACTIONS (3)
  - Anxiety [Recovered/Resolved]
  - Depression [Recovered/Resolved]
  - Mood swings [Recovered/Resolved]
